FAERS Safety Report 23264194 (Version 1)
Quarter: 2023Q4

REPORT INFORMATION
  Report Type: Other
  Country: CL (occurrence: None)
  Receive Date: 20231205
  Receipt Date: 20231205
  Transmission Date: 20240110
  Serious: Yes (Hospitalization, Other)
  Sender: FDA-Public Use
  Company Number: CL-ROCHE-3465957

PATIENT
  Age: 23 Year
  Sex: Female
  Weight: 78 kg

DRUGS (1)
  1. OCREVUS [Suspect]
     Active Substance: OCRELIZUMAB
     Indication: Multiple sclerosis
     Route: 042
     Dates: start: 2021

REACTIONS (5)
  - Respiratory tract infection [Recovered/Resolved]
  - Epilepsy [Unknown]
  - Asthma [Unknown]
  - Fibromyalgia [Unknown]
  - Depression [Unknown]

NARRATIVE: CASE EVENT DATE: 20231109
